FAERS Safety Report 8606997-8 (Version None)
Quarter: 2012Q3

REPORT INFORMATION
  Report Type: 
  Country: None (occurrence: None)
  Receive Date: 20120820
  Receipt Date: 20120817
  Transmission Date: 20120928
  Serious: Yes (Life-Threatening)
  Sender: FDA-Public Use
  Company Number: GB-PFIZER INC-2012201841

PATIENT
  Age: 58 Year
  Sex: Male

DRUGS (2)
  1. CHANTIX [Suspect]
     Indication: SMOKING CESSATION THERAPY
     Dosage: 1 MG, 2X/DAY
     Route: 048
     Dates: start: 20120709
  2. ROSUVASTATIN [Concomitant]

REACTIONS (2)
  - MENTAL DISORDER [None]
  - VIOLENCE-RELATED SYMPTOM [None]
